FAERS Safety Report 18639370 (Version 1)
Quarter: 2020Q4

REPORT INFORMATION
  Report Type: Report from Study
  Country: US (occurrence: US)
  Receive Date: 20201219
  Receipt Date: 20201219
  Transmission Date: 20210114
  Serious: Yes (Other)
  Sender: FDA-Public Use
  Company Number: NVSC2020US333635

PATIENT
  Sex: Female

DRUGS (1)
  1. ZARXIO [Suspect]
     Active Substance: FILGRASTIM-SNDZ
     Indication: PRODUCT USED FOR UNKNOWN INDICATION
     Dosage: UNK (300MCG/0.5ML 1 SYRINGE)
     Route: 065

REACTIONS (3)
  - Breast cancer stage IV [Unknown]
  - Confusional state [Unknown]
  - Breast cancer recurrent [Unknown]
